FAERS Safety Report 6974521-1 (Version None)
Quarter: 2010Q3

REPORT INFORMATION
  Report Type: 
  Country: None (occurrence: None)
  Receive Date: 20100909
  Receipt Date: 20080829
  Transmission Date: 20110219
  Serious: No
  Sender: FDA-Public Use
  Company Number: US-WYE-H05844408

PATIENT
  Sex: Female
  Weight: 72.64 kg

DRUGS (3)
  1. PROTONIX [Suspect]
     Indication: ABDOMINAL PAIN UPPER
     Route: 048
     Dates: start: 20080813, end: 20080825
  2. ACTONEL [Concomitant]
  3. PREMARIN [Concomitant]

REACTIONS (4)
  - ALOPECIA [None]
  - PAIN [None]
  - RASH ERYTHEMATOUS [None]
  - SKIN MASS [None]
